FAERS Safety Report 7163904-5 (Version None)
Quarter: 2010Q4

REPORT INFORMATION
  Report Type: 
  Country: None (occurrence: None)
  Receive Date: 20101215
  Receipt Date: 20101201
  Transmission Date: 20110411
  Serious: Yes (Hospitalization)
  Sender: FDA-Public Use
  Company Number: TR-CELGENEUS-161-21880-10120032

PATIENT
  Sex: Female
  Weight: 80 kg

DRUGS (5)
  1. REVLIMID [Suspect]
     Indication: MULTIPLE MYELOMA
     Route: 048
     Dates: start: 20101113, end: 20101125
  2. DEXAMETHASONE [Suspect]
     Indication: MULTIPLE MYELOMA
     Route: 065
     Dates: start: 20101113, end: 20101125
  3. TK1258 [Concomitant]
     Indication: MULTIPLE MYELOMA
     Route: 065
     Dates: start: 20100624, end: 20101018
  4. LYRICA [Concomitant]
     Route: 048
     Dates: start: 20090615
  5. XANAX [Concomitant]
     Route: 048
     Dates: start: 20100802

REACTIONS (4)
  - ANAEMIA [None]
  - GUILLAIN-BARRE SYNDROME [None]
  - NEUTROPENIA [None]
  - THROMBOCYTOPENIA [None]
